FAERS Safety Report 14765610 (Version 1)
Quarter: 2018Q2

REPORT INFORMATION
  Report Type: Spontaneous
  Country: US (occurrence: US)
  Receive Date: 20180410
  Receipt Date: 20180410
  Transmission Date: 20180711
  Serious: Yes (Other)
  Sender: FDA-Public Use
  Company Number: None

PATIENT
  Age: 23 Year
  Sex: Female
  Weight: 60.33 kg

DRUGS (2)
  1. ATOMOXETINE 80MG RISING PHARMACEUTICALS [Suspect]
     Active Substance: ATOMOXETINE
     Indication: ATTENTION DEFICIT/HYPERACTIVITY DISORDER
     Route: 048
     Dates: start: 20180125, end: 20180227
  2. ATOMOXETINE 80MG RISING PHARMACEUTICALS [Suspect]
     Active Substance: ATOMOXETINE
     Indication: ATTENTION DEFICIT/HYPERACTIVITY DISORDER
     Route: 048
     Dates: start: 20180329

REACTIONS (4)
  - Disturbance in attention [None]
  - Tachycardia [None]
  - Anxiety [None]
  - Condition aggravated [None]

NARRATIVE: CASE EVENT DATE: 20180125
